FAERS Safety Report 9764234 (Version 1)
Quarter: 2013Q4

REPORT INFORMATION
  Report Type: Spontaneous
  Country: CA (occurrence: CA)
  Receive Date: 20131216
  Receipt Date: 20131216
  Transmission Date: 20140711
  Serious: Yes (Other)
  Sender: FDA-Public Use
  Company Number: CA-BRISTOL-MYERS SQUIBB COMPANY-19902329

PATIENT
  Age: 42 Year
  Sex: Female

DRUGS (7)
  1. TAXOL [Suspect]
     Indication: BREAST CANCER METASTATIC
     Dates: start: 2009
  2. TYKERB [Suspect]
     Indication: BREAST CANCER METASTATIC
     Dates: start: 201209, end: 201309
  3. XELODA [Suspect]
     Indication: BREAST CANCER METASTATIC
     Dates: start: 201209, end: 201309
  4. DECADRON [Suspect]
  5. AVALOX [Suspect]
     Dosage: FOR 10 DAYS
     Dates: start: 201311
  6. NAVELBINE [Suspect]
     Dates: start: 2009
  7. HERCEPTIN [Suspect]
     Dates: start: 2009, end: 2013

REACTIONS (6)
  - Metastases to central nervous system [Unknown]
  - Convulsion [Unknown]
  - Dyspnoea [Unknown]
  - Weight decreased [Unknown]
  - Muscle atrophy [Unknown]
  - Onychomadesis [Unknown]
